FAERS Safety Report 4972019-3 (Version None)
Quarter: 2006Q2

REPORT INFORMATION
  Report Type: 
  Country: None (occurrence: None)
  Receive Date: 20060412
  Receipt Date: 20060412
  Transmission Date: 20061013
  Serious: Yes (Hospitalization)
  Sender: FDA-Public Use
  Company Number: None

PATIENT
  Sex: Male
  Weight: 70.5 kg

DRUGS (1)
  1. TEGRETOL [Suspect]
     Indication: PSYCHOTIC DISORDER
     Dosage: 400 MG BID PO
     Route: 048
     Dates: start: 20060303, end: 20060306

REACTIONS (3)
  - AGITATION [None]
  - GRAND MAL CONVULSION [None]
  - HYPONATRAEMIA [None]
